FAERS Safety Report 9222428 (Version 1)
Quarter: 2013Q2

REPORT INFORMATION
  Report Type: Spontaneous
  Country: US (occurrence: US)
  Receive Date: 20130410
  Receipt Date: 20130410
  Transmission Date: 20140414
  Serious: Yes (Hospitalization)
  Sender: FDA-Public Use
  Company Number: US-BAYER-2013-043607

PATIENT
  Sex: Female

DRUGS (8)
  1. YASMIN [Suspect]
  2. ZOCOR [Concomitant]
     Dosage: 20 MG, UNK
  3. LEVSIN SL [Concomitant]
     Dosage: 125 UNK, UNK
  4. STEROIDS [Concomitant]
     Route: 042
  5. AZITHROMYCIN [Concomitant]
  6. XARELTO [Concomitant]
  7. LEVAQUIN [Concomitant]
  8. ADVAIR [Concomitant]

REACTIONS (1)
  - Pulmonary embolism [None]
